FAERS Safety Report 5704317-X (Version None)
Quarter: 2008Q2

REPORT INFORMATION
  Report Type: 
  Country: None (occurrence: None)
  Receive Date: 20080409
  Receipt Date: 20080327
  Transmission Date: 20081010
  Serious: Yes (Hospitalization)
  Sender: FDA-Public Use
  Company Number: 000384

PATIENT
  Age: 63 Year
  Sex: Male

DRUGS (11)
  1. PLETAL [Suspect]
     Indication: ARTERIOSCLEROSIS OBLITERANS
     Dosage: 50 MG, BID ORAL
     Route: 048
     Dates: start: 20080226, end: 20080325
  2. PREDNISOLONE (PREDNISOLONE) TABLET, 5 MG [Suspect]
  3. BENET (SODIUM RISEDRONATE SODIUM HYDRATE) TABLET 17.5MG [Suspect]
     Dosage: 17.5 MG,QD; ORAL
     Route: 048
  4. ZYLORIC (ALLOPURINOL) TABLET 100 MG; REGIMEN #1 [Suspect]
     Dosage: 100 MG, QD; ORAL
     Route: 048
  5. BAKTAR (SULFAMETHOXAZOLE TRIMETHOPRIM) TABLET, 100 MG; REGIMEN #1 [Suspect]
     Dosage: 100 MG, QD; ORAL
     Route: 048
  6. OMEPRAL (OMEPRAZOLE) TABLET, 20 MG; REGIMEN #1 [Suspect]
     Dosage: 20 MG, QD; ORAL
     Route: 048
  7. METHYCOBAL (MECOBALAMIN) TABLET, 500 UG; REGIMEN #1 [Suspect]
     Dosage: 500 UG, TID; ORAL
     Route: 048
  8. GLIVEC (IMATINIB MESILATE) TABLET, 100 MG; REGIMEN #1 [Suspect]
     Dosage: 400 MG, QD; ORAL
     Route: 048
  9. INNOLET N (INSULIN HUMAN (GENETICAL RECOMBINATION)) INJECTION; REGIMEN [Suspect]
     Dosage: SUBCUTANEOUS
     Route: 058
  10. INNOLET R (INSULIN HUMAN (GENETICAL RECOMBINATION)) INJECTION; REGIMEN [Suspect]
     Dosage: SUBCUTANEOUS
     Route: 058
  11. DIFLUCAN [Suspect]
     Dosage: 100 MG, QD; ORAL
     Route: 048

REACTIONS (1)
  - BLAST CELL PROLIFERATION [None]
